FAERS Safety Report 18249602 (Version 2)
Quarter: 2020Q4

REPORT INFORMATION
  Report Type: Spontaneous
  Country: US (occurrence: US)
  Receive Date: 20200909
  Receipt Date: 20201030
  Transmission Date: 20210113
  Serious: Yes (Other)
  Sender: FDA-Public Use
  Company Number: US-ASTRAZENECA-2020SF14138

PATIENT
  Sex: Female

DRUGS (1)
  1. BYETTA [Suspect]
     Active Substance: EXENATIDE
     Dosage: 250 MCG / 2.4 ML PEN10.0UG UNKNOWN
     Route: 065

REACTIONS (6)
  - Sarcoidosis [Unknown]
  - Device leakage [Unknown]
  - Medication error [Unknown]
  - Product use issue [Not Recovered/Not Resolved]
  - Autoimmune disorder [Unknown]
  - Device malfunction [Unknown]
